FAERS Safety Report 16424777 (Version 1)
Quarter: 2019Q2

REPORT INFORMATION
  Report Type: Spontaneous
  Country: SE (occurrence: SE)
  Receive Date: 20190613
  Receipt Date: 20190613
  Transmission Date: 20190711
  Serious: Yes (Other)
  Sender: FDA-Public Use
  Company Number: SE-PFIZER INC-2019248804

PATIENT
  Age: 16 Year
  Sex: Female

DRUGS (4)
  1. GABAPENTIN. [Suspect]
     Active Substance: GABAPENTIN
     Dosage: BEGAN TO DECREASE THE DOSE
     Route: 048
     Dates: start: 20181218, end: 20190101
  2. GABAPENTIN. [Suspect]
     Active Substance: GABAPENTIN
     Dosage: 19/10 TILL 600 MG 1X3, THEN CONTINUED ESCALATING DOSE
     Route: 048
     Dates: start: 20181019, end: 20181210
  3. GABAPENTIN. [Suspect]
     Active Substance: GABAPENTIN
     Dosage: 26/9 300 MG ONCE DAILY IN ESCALATING DOSE
     Route: 048
     Dates: start: 20180926, end: 20181018
  4. GABAPENTIN. [Suspect]
     Active Substance: GABAPENTIN
     Dosage: STEPS UP TO MAXIMUM DOSE 1 + 1 + 2 (2400 MG / D) TO 11/12
     Route: 048
     Dates: start: 20181211, end: 20181217

REACTIONS (3)
  - Pleurisy [Recovered/Resolved]
  - Pancreatitis [Recovered/Resolved]
  - Muscle spasms [Recovered/Resolved]

NARRATIVE: CASE EVENT DATE: 20181010
